FAERS Safety Report 21124954 (Version 1)
Quarter: 2022Q3

REPORT INFORMATION
  Report Type: Spontaneous
  Country: US (occurrence: None)
  Receive Date: 20220724
  Receipt Date: 20220724
  Transmission Date: 20221027
  Serious: Yes (Other)
  Sender: FDA-Public Use
  Company Number: None

PATIENT
  Age: 67 Year
  Sex: Female
  Weight: 68.4 kg

DRUGS (4)
  1. PAXLOVID [Suspect]
     Active Substance: NIRMATRELVIR\RITONAVIR
     Indication: SARS-CoV-2 test positive
     Dosage: OTHER QUANTITY : 30 TABLET(S);?FREQUENCY : TWICE A DAY;?
     Route: 048
     Dates: start: 20220716, end: 20220721
  2. VITAMIN B12 [Concomitant]
     Active Substance: CYANOCOBALAMIN
  3. VITAMIN D3 [Concomitant]
     Active Substance: CHOLECALCIFEROL
  4. TYLENOL [Concomitant]
     Active Substance: ACETAMINOPHEN

REACTIONS (13)
  - Rebound effect [None]
  - Pyrexia [None]
  - Hyperhidrosis [None]
  - Dysgeusia [None]
  - Chest discomfort [None]
  - Dyspnoea [None]
  - Dysphonia [None]
  - Vision blurred [None]
  - Fatigue [None]
  - Rhinorrhoea [None]
  - Hypersomnia [None]
  - Sneezing [None]
  - Chills [None]

NARRATIVE: CASE EVENT DATE: 20220723
